FAERS Safety Report 21504499 (Version 1)
Quarter: 2022Q4

REPORT INFORMATION
  Report Type: Spontaneous
  Country: DE (occurrence: None)
  Receive Date: 20221025
  Receipt Date: 20221025
  Transmission Date: 20230113
  Serious: Yes (Other)
  Sender: FDA-Public Use
  Company Number: 2022A350990

PATIENT
  Sex: Male

DRUGS (2)
  1. XIGDUO XR [Suspect]
     Active Substance: DAPAGLIFLOZIN PROPANEDIOL\METFORMIN HYDROCHLORIDE
     Dosage: 5/1000 MG
     Route: 048
  2. XIGDUO XR [Suspect]
     Active Substance: DAPAGLIFLOZIN PROPANEDIOL\METFORMIN HYDROCHLORIDE
     Dosage: 5/1000 MG
     Route: 048

REACTIONS (5)
  - Angina pectoris [Recovering/Resolving]
  - Tachycardia [Recovering/Resolving]
  - Rash [Recovering/Resolving]
  - Diarrhoea [Recovering/Resolving]
  - Intentional product misuse [Unknown]
